FAERS Safety Report 16350482 (Version 2)
Quarter: 2023Q2

REPORT INFORMATION
  Report Type: Spontaneous
  Country: IT (occurrence: IT)
  Receive Date: 20190524
  Receipt Date: 20230404
  Transmission Date: 20230721
  Serious: Yes (Life-Threatening, Hospitalization, Other)
  Sender: FDA-Public Use
  Company Number: IT-MACLEODS PHARMACEUTICALS US LTD-MAC2019021368

PATIENT

DRUGS (1)
  1. QUETIAPINE [Suspect]
     Active Substance: QUETIAPINE
     Indication: Product used for unknown indication
     Dosage: 15 GRAM (50 EXTENDED-RELEASE 300 MG TABLETS)
     Route: 065

REACTIONS (5)
  - Sinus tachycardia [Recovering/Resolving]
  - Suicide attempt [Unknown]
  - Mental disorder [Unknown]
  - Seizure [Unknown]
  - Intentional overdose [Recovering/Resolving]
